FAERS Safety Report 13805787 (Version 3)
Quarter: 2017Q3

REPORT INFORMATION
  Report Type: Spontaneous
  Country: FR (occurrence: FR)
  Receive Date: 20170728
  Receipt Date: 20170828
  Transmission Date: 20171127
  Serious: Yes (Other)
  Sender: FDA-Public Use
  Company Number: FR-PFIZER INC-2017320950

PATIENT
  Age: 50 Year
  Sex: Male

DRUGS (9)
  1. ZOPHREN [Concomitant]
     Active Substance: ONDANSETRON
     Indication: ANTIEMETIC SUPPORTIVE CARE
     Dosage: UNK
  2. CARBOPLATINE HOSPIRA [Suspect]
     Active Substance: CARBOPLATIN
     Indication: LUNG ADENOCARCINOMA
     Dosage: 650 MG, MONTHLY (ONCE EVERY 4 WEEKS)
     Route: 042
     Dates: start: 201612, end: 201702
  3. CARBOPLATINE HOSPIRA [Suspect]
     Active Substance: CARBOPLATIN
     Dosage: 650 MG, MONTHLY (ONCE EVERY 4 WEEKS)
     Route: 042
     Dates: start: 20170505
  4. ALIMTA [Suspect]
     Active Substance: PEMETREXED DISODIUM
     Dosage: UNK
     Dates: start: 20170801
  5. ALIMTA [Suspect]
     Active Substance: PEMETREXED DISODIUM
     Indication: LUNG ADENOCARCINOMA
     Dosage: 565 MG, MONTHLY (ONCE EVERY 4 WEEKS)
     Route: 042
     Dates: start: 201612, end: 201702
  6. ALIMTA [Suspect]
     Active Substance: PEMETREXED DISODIUM
     Dosage: 565 MG, MONTHLY (ONCE EVERY 4 WEEKS)
     Route: 042
     Dates: start: 20170711
  7. CARBOPLATINE HOSPIRA [Suspect]
     Active Substance: CARBOPLATIN
     Dosage: 650 MG, MONTHLY (ONCE EVERY 4 WEEKS)
     Route: 042
     Dates: start: 20170711, end: 20170711
  8. ALIMTA [Suspect]
     Active Substance: PEMETREXED DISODIUM
     Dosage: 565 MG, MONTHLY (ONCE EVERY 4 WEEKS)
     Route: 042
     Dates: start: 20170505
  9. PRIMPERAN [Concomitant]
     Active Substance: METOCLOPRAMIDE HYDROCHLORIDE
     Indication: ANTIEMETIC SUPPORTIVE CARE
     Dosage: UNK

REACTIONS (4)
  - Bronchospasm [Recovered/Resolved]
  - Generalised erythema [Recovered/Resolved]
  - Oxygen saturation decreased [Recovered/Resolved]
  - Hyperhidrosis [Unknown]

NARRATIVE: CASE EVENT DATE: 20170711
